FAERS Safety Report 6819731-9 (Version None)
Quarter: 2010Q3

REPORT INFORMATION
  Report Type: 
  Country: None (occurrence: None)
  Receive Date: 20100707
  Receipt Date: 20090708
  Transmission Date: 20110219
  Serious: No
  Sender: FDA-Public Use
  Company Number: US-PFIZER INC-2009238139

PATIENT
  Sex: Female
  Weight: 58.967 kg

DRUGS (3)
  1. XANAX [Suspect]
     Indication: ANXIETY
     Dosage: UNK
  2. XANAX [Suspect]
     Indication: NERVOUSNESS
  3. ATIVAN [Concomitant]
     Dosage: UNK

REACTIONS (3)
  - CARDIAC DISORDER [None]
  - HEART RATE INCREASED [None]
  - NERVOUSNESS [None]
